FAERS Safety Report 13897638 (Version 1)
Quarter: 2017Q3

REPORT INFORMATION
  Report Type: Spontaneous
  Country: NL (occurrence: NL)
  Receive Date: 20170823
  Receipt Date: 20170823
  Transmission Date: 20171127
  Serious: Yes (Other)
  Sender: FDA-Public Use
  Company Number: PHHY2017NL123174

PATIENT
  Age: 57 Year
  Sex: Male

DRUGS (1)
  1. PASIREOTIDE LAR [Suspect]
     Active Substance: PASIREOTIDE
     Indication: PITUITARY TUMOUR
     Dosage: 40 MG/4 WEEKS
     Route: 065

REACTIONS (2)
  - Diabetes mellitus [Recovered/Resolved]
  - Off label use [Unknown]
